FAERS Safety Report 7334303-8 (Version None)
Quarter: 2011Q1

REPORT INFORMATION
  Report Type: 
  Country: None (occurrence: None)
  Receive Date: 20110307
  Receipt Date: 20110218
  Transmission Date: 20110831
  Serious: Yes (Other)
  Sender: FDA-Public Use
  Company Number: US-BAYER-201033511NA

PATIENT
  Sex: Female
  Weight: 63 kg

DRUGS (2)
  1. YASMIN [Suspect]
     Indication: CONTRACEPTION
     Dates: start: 20090701, end: 20090901
  2. YAZ [Suspect]
     Indication: CONTRACEPTION
     Dates: start: 20091001, end: 20100101

REACTIONS (6)
  - ABDOMINAL PAIN [None]
  - RENAL PAIN [None]
  - CHOLELITHIASIS [None]
  - CHOLECYSTITIS CHRONIC [None]
  - URINARY TRACT INFECTION [None]
  - GALLBLADDER CHOLESTEROLOSIS [None]
